FAERS Safety Report 9380328 (Version 11)
Quarter: 2014Q3

REPORT INFORMATION
  Report Type: Spontaneous
  Country: US (occurrence: US)
  Receive Date: 20130702
  Receipt Date: 20140828
  Transmission Date: 20150326
  Serious: Yes (Death, Hospitalization)
  Sender: FDA-Public Use
  Company Number: US-GLAXOSMITHKLINE-A0905635A

PATIENT
  Age: 65 Year
  Sex: Female
  Weight: 109 kg

DRUGS (18)
  1. MAGNESIUM [Concomitant]
     Active Substance: MAGNESIUM
     Dosage: 800MG PER DAY
     Route: 048
  2. OXYGEN. [Concomitant]
     Active Substance: OXYGEN
  3. FLOLAN [Suspect]
     Active Substance: EPOPROSTENOL SODIUM
     Indication: PULMONARY ARTERIAL HYPERTENSION
     Dosage: 40NGKM CONTINUOUS
     Route: 042
     Dates: start: 20090729
  4. TRACLEER [Concomitant]
     Active Substance: BOSENTAN\BOSENTAN MONOHYDRATE
     Dosage: 125MG TWICE PER DAY
     Route: 048
  5. MULTIVITAMIN [Concomitant]
     Active Substance: VITAMINS
  6. POTASSIUM CHLORIDE. [Concomitant]
     Active Substance: POTASSIUM CHLORIDE
     Dosage: 60MEQ FOUR TIMES PER DAY
  7. FERROUS SULFATE [Concomitant]
     Active Substance: FERROUS SULFATE\FERROUS SULFATE, DRIED
     Dosage: 325MG THREE TIMES PER DAY
     Route: 048
  8. CALCIUM CARBONATE. [Concomitant]
     Active Substance: CALCIUM CARBONATE
  9. LOPERAMIDE [Concomitant]
     Active Substance: LOPERAMIDE
  10. LEXAPRO [Concomitant]
     Active Substance: ESCITALOPRAM OXALATE
     Dosage: 20MG PER DAY
     Route: 048
  11. ZOCOR [Concomitant]
     Active Substance: SIMVASTATIN
     Dosage: 40MG PER DAY
  12. BOSENTAN [Concomitant]
     Active Substance: BOSENTAN\BOSENTAN MONOHYDRATE
  13. CALCIUM + VITAMIN D [Concomitant]
     Active Substance: CALCIUM\VITAMIN D
     Dosage: 1TAB PER DAY
     Route: 048
  14. HEPARIN [Concomitant]
     Active Substance: HEPARIN SODIUM
  15. METFORMIN [Concomitant]
     Active Substance: METFORMIN HYDROCHLORIDE
     Dosage: 1000MG TWICE PER DAY
     Route: 048
  16. BUMEX [Concomitant]
     Active Substance: BUMETANIDE
     Dosage: 4MG TWICE PER DAY
     Route: 048
  17. NEXIUM [Concomitant]
     Active Substance: ESOMEPRAZOLE MAGNESIUM
     Dosage: 40MG PER DAY
  18. PREDNISONE. [Concomitant]
     Active Substance: PREDNISONE
     Dosage: 10MG PER DAY

REACTIONS (17)
  - Cardiac failure [Unknown]
  - Device related sepsis [Recovered/Resolved]
  - Rash papular [Not Recovered/Not Resolved]
  - Diarrhoea [Not Recovered/Not Resolved]
  - Chills [Recovered/Resolved]
  - Medical device complication [Unknown]
  - Drug administration error [Fatal]
  - Device leakage [Unknown]
  - Device occlusion [Recovered/Resolved]
  - Rhinorrhoea [Not Recovered/Not Resolved]
  - Pyrexia [Recovered/Resolved]
  - Medical device complication [Recovered/Resolved]
  - Therapy cessation [Unknown]
  - Enterobacter bacteraemia [Recovered/Resolved]
  - Cardiac arrest [Fatal]
  - Resuscitation [Unknown]
  - Death [Fatal]

NARRATIVE: CASE EVENT DATE: 20140801
